FAERS Safety Report 11773680 (Version 2)
Quarter: 2015Q4

REPORT INFORMATION
  Report Type: Spontaneous
  Country: US (occurrence: US)
  Receive Date: 20151124
  Receipt Date: 20151127
  Transmission Date: 20160304
  Serious: Yes (Other)
  Sender: FDA-Public Use
  Company Number: US-BAYER-2015-465070

PATIENT
  Age: 68 Year
  Sex: Male
  Weight: 81.63 kg

DRUGS (3)
  1. RID 1-2-3 SYSTEM [Suspect]
     Active Substance: PIPERONYL BUTOXIDE\PYRETHRUM EXTRACT
     Indication: LICE INFESTATION
     Dosage: UNK
  2. RID SHAMPOO [Suspect]
     Active Substance: PIPERONYL BUTOXIDE\PYRETHRIN I
     Indication: INFESTATION
  3. RID SHAMPOO [Suspect]
     Active Substance: PIPERONYL BUTOXIDE\PYRETHRIN I
     Indication: LICE INFESTATION
     Dosage: UNK
     Route: 061
     Dates: start: 201510, end: 20151115

REACTIONS (5)
  - Product use issue [None]
  - Trichorrhexis [None]
  - Pain of skin [Not Recovered/Not Resolved]
  - Skin lesion [Not Recovered/Not Resolved]
  - Skin haemorrhage [Not Recovered/Not Resolved]
